FAERS Safety Report 6516694-0 (Version None)
Quarter: 2009Q4

REPORT INFORMATION
  Report Type: 
  Country: None (occurrence: None)
  Receive Date: 20091223
  Receipt Date: 20091215
  Transmission Date: 20100525
  Serious: Yes (Death, Hospitalization, Other)
  Sender: FDA-Public Use
  Company Number: US-BAXTER-2009BH019392

PATIENT
  Age: 72 Year
  Sex: Female

DRUGS (3)
  1. DIANEAL [Suspect]
     Indication: PERITONEAL DIALYSIS
     Route: 033
     Dates: start: 20070201, end: 20090101
  2. DIANEAL [Suspect]
     Indication: PERITONEAL DIALYSIS
     Route: 033
     Dates: start: 20070201, end: 20091127
  3. PROAMATINE [Concomitant]
     Indication: BLOOD PRESSURE
     Route: 065

REACTIONS (2)
  - PERITONITIS [None]
  - SEPSIS [None]
